FAERS Safety Report 9493357 (Version 2)
Quarter: 2013Q3

REPORT INFORMATION
  Report Type: Report from Study
  Country: AU (occurrence: AU)
  Receive Date: 20130902
  Receipt Date: 20130916
  Transmission Date: 20140515
  Serious: Yes (Other)
  Sender: FDA-Public Use
  Company Number: PHHY2013AU094851

PATIENT
  Age: 69 Year
  Sex: Male

DRUGS (19)
  1. ACLASTA [Suspect]
     Dosage: 5 MG
     Route: 042
     Dates: start: 20110830
  2. ACLASTA [Suspect]
     Dosage: 5 MG
     Route: 042
     Dates: start: 20120815
  3. ACLASTA [Suspect]
     Dosage: 5 MG, YEARLY
     Route: 042
     Dates: start: 20130904
  4. CHLORSIG [Concomitant]
     Dosage: 1 %, TID
  5. CRESTOR [Concomitant]
     Dosage: 5 MG, QD
  6. DOTHEP [Concomitant]
     Dosage: 75 MG, QD
  7. ENDONE [Concomitant]
     Dosage: 5 MG, 1 TWICE A DAY AS DIRECTED PRN
  8. NEO-B [Concomitant]
     Dosage: 1 MG/ML
  9. OSTELIN VITAMIN D [Concomitant]
     Dosage: BID
  10. OXYCONTIN [Concomitant]
     Dosage: 10 MG, BID
  11. PANADOL OSTEO [Concomitant]
     Dosage: 665 MG,TID
  12. PANAMAX [Concomitant]
     Dosage: 500 MG, BID
  13. QUININE SULFATE [Concomitant]
     Dosage: 300 MG, QD
  14. RECTOGESIC [Concomitant]
     Dosage: 0.2 %, UNK
  15. RIVOTRIL [Concomitant]
     Dosage: 2 MG, 1/2 DAILY
  16. TESTOGEL [Concomitant]
     Dosage: 50 MG / 5 G
  17. TESTOSTERONE [Concomitant]
     Dosage: 5 MG / 24 HRS
  18. VALIUM [Concomitant]
     Dosage: 5 MG, UNK
  19. ZANTAC [Concomitant]
     Dosage: 150 MG, 1-2 DAILY BEFORE BED

REACTIONS (2)
  - Chronic obstructive pulmonary disease [Unknown]
  - Osteoarthritis [Unknown]
